FAERS Safety Report 6368040 (Version 24)
Quarter: 2020Q3

REPORT INFORMATION
  Report Type: Report from Study
  Country: US (occurrence: US)
  Receive Date: 20070726
  Receipt Date: 20080613
  Transmission Date: 20201104
  Serious: Yes (Life-Threatening, Disabling, Other)
  Sender: FDA-Public Use
  Company Number: HQWYE168020JUL07

PATIENT
  Age: 57 Year
  Sex: Male
  Weight: 108 kg

DRUGS (9)
  1. NESBUVIR [Suspect]
     Active Substance: NESBUVIR
     Indication: HEPATITIS C
     Route: 048
     Dates: start: 20070313, end: 20070626
  2. RIBAVIRIN. [Suspect]
     Active Substance: RIBAVIRIN
     Dosage: 1000 MG DAILY
     Route: 048
     Dates: start: 20070326, end: 20070328
  3. ALBUTEROL. [Concomitant]
     Active Substance: ALBUTEROL
     Indication: DYSPNOEA
  4. VICODIN [Concomitant]
     Active Substance: ACETAMINOPHEN\HYDROCODONE BITARTRATE
     Dosage: ^OCCASIONAL^
  5. PEGINTERFERON ALFA?2B [Suspect]
     Active Substance: PEGINTERFERON ALFA-2B
     Indication: HEPATITIS C
     Route: 058
     Dates: start: 20070313, end: 20070626
  6. RIBAVIRIN. [Suspect]
     Active Substance: RIBAVIRIN
     Indication: HEPATITIS C
     Dosage: 1400 MG DAILY
     Route: 048
     Dates: start: 20070313, end: 20070325
  7. FOLIC ACID. [Concomitant]
     Active Substance: FOLIC ACID
     Indication: VITAMIN SUPPLEMENTATION
     Dosage: UNKNOWN
     Dates: start: 20070605, end: 20070619
  8. RIBAVIRIN. [Suspect]
     Active Substance: RIBAVIRIN
     Dosage: 800 MG DAILY
     Route: 048
     Dates: start: 20070329, end: 20070626
  9. IBUPROFEN. [Concomitant]
     Active Substance: IBUPROFEN
     Dosage: UNKNOWN

REACTIONS (1)
  - Liver function test abnormal [Recovered/Resolved]

NARRATIVE: CASE EVENT DATE: 20070626
